FAERS Safety Report 8221329-5 (Version None)
Quarter: 2012Q1

REPORT INFORMATION
  Report Type: 
  Country: None (occurrence: None)
  Receive Date: 20120320
  Receipt Date: 20120314
  Transmission Date: 20120608
  Serious: Yes (Hospitalization)
  Sender: FDA-Public Use
  Company Number: PHHY2012ES023133

PATIENT
  Age: 61 Year
  Sex: Male

DRUGS (10)
  1. HYDROCHLOROTHIAZIDE [Concomitant]
  2. PIOGLITAZONE [Concomitant]
  3. REPAGLINIDE [Concomitant]
  4. PARICALCITOL [Concomitant]
  5. DUTASTERIDE [Concomitant]
  6. HALOPERIDOL [Concomitant]
  7. TEGRETOL [Suspect]
     Dosage: 400 MG DAILY
     Route: 048
     Dates: start: 20120112, end: 20120117
  8. INSULIN [Concomitant]
  9. ENALAPRIL [Concomitant]
  10. LITHIUM CARBONATE [Concomitant]

REACTIONS (3)
  - GAIT DISTURBANCE [None]
  - DYSARTHRIA [None]
  - MUSCLE CONTRACTURE [None]
